FAERS Safety Report 6257492-5 (Version None)
Quarter: 2009Q3

REPORT INFORMATION
  Report Type: 
  Country: None (occurrence: None)
  Receive Date: 20090706
  Receipt Date: 20090624
  Transmission Date: 20100115
  Serious: Yes (Hospitalization)
  Sender: FDA-Public Use
  Company Number: US-ELI_LILLY_AND_COMPANY-US200906000469

PATIENT
  Sex: Female
  Weight: 97.052 kg

DRUGS (10)
  1. BYETTA [Suspect]
     Indication: TYPE 2 DIABETES MELLITUS
     Dosage: 5 UG, 2/D
     Route: 058
     Dates: start: 20061001, end: 20061101
  2. BYETTA [Suspect]
     Dosage: 10 UG, 2/D
     Route: 058
     Dates: start: 20061101
  3. METFORMIN HCL [Concomitant]
     Dosage: UNK, 2/D
  4. LANTUS [Concomitant]
     Dosage: 40 U, 2/D
  5. GABAPENTIN [Concomitant]
     Dosage: 600 MG, 2/D
  6. METOPROLOL [Concomitant]
     Dosage: 50 MG, 2/D
  7. DIOVAN [Concomitant]
     Dosage: 160 MG, DAILY (1/D)
  8. CYMBALTA [Concomitant]
     Dosage: 60 MG, DAILY (1/D)
  9. SIMVASTATIN [Concomitant]
     Dosage: 40 MG, EACH EVENING
  10. ENTERIC ASPIRIN [Concomitant]
     Dosage: 325 MG, DAILY (1/D)
     Dates: end: 20090501

REACTIONS (2)
  - RENAL CELL CARCINOMA [None]
  - WEIGHT DECREASED [None]
